FAERS Safety Report 21802301 (Version 1)
Quarter: 2022Q4

REPORT INFORMATION
  Report Type: Spontaneous
  Country: US (occurrence: US)
  Receive Date: 20221230
  Receipt Date: 20221230
  Transmission Date: 20230113
  Serious: No
  Sender: FDA-Public Use
  Company Number: US-ACORDA-ACO_173369_2022

PATIENT
  Age: 72 Year
  Sex: Female

DRUGS (3)
  1. INBRIJA [Suspect]
     Active Substance: LEVODOPA
     Indication: Parkinson^s disease
     Dosage: 2 CAPSULES,PRN (UP TO 5 TIMES A DAY AS NEEDED)
     Dates: start: 202204, end: 202208
  2. INBRIJA [Suspect]
     Active Substance: LEVODOPA
     Dosage: 2 CAPSULES,PRN (UP TO 5 TIMES A DAY AS NEEDED)
     Dates: start: 20220826
  3. CARBIDOPA\LEVODOPA [Concomitant]
     Active Substance: CARBIDOPA\LEVODOPA
     Indication: Parkinson^s disease
     Dosage: UNKNOWN
     Route: 065

REACTIONS (6)
  - COVID-19 [Recovered/Resolved]
  - Expired product administered [Unknown]
  - Sputum discoloured [Recovered/Resolved]
  - Cough [Not Recovered/Not Resolved]
  - Sputum discoloured [Unknown]
  - Upper respiratory tract infection [Unknown]

NARRATIVE: CASE EVENT DATE: 20220815
